FAERS Safety Report 19557876 (Version 1)
Quarter: 2021Q3

REPORT INFORMATION
  Report Type: Report from Study
  Country: None (occurrence: IL)
  Receive Date: 20210716
  Receipt Date: 20210716
  Transmission Date: 20211014
  Serious: Yes (Other)
  Sender: FDA-Public Use
  Company Number: IL-ABBVIE-21K-082-3948647-00

PATIENT
  Age: 47 Year
  Sex: Female
  Weight: 92 kg

DRUGS (5)
  1. HUMIRA [Suspect]
     Active Substance: ADALIMUMAB
     Indication: ANKYLOSING SPONDYLITIS
  2. HUMIRA [Suspect]
     Active Substance: ADALIMUMAB
     Indication: SACROILIITIS
     Dosage: DISCONTINUED FOR 2 MONTHS
     Route: 058
     Dates: start: 2012
  3. HUMIRA [Suspect]
     Active Substance: ADALIMUMAB
     Dosage: DISCONTINUED ON HER OWN FOR?2 MONTHS
     Route: 058
     Dates: start: 20090501
  4. HUMIRA [Suspect]
     Active Substance: ADALIMUMAB
     Indication: SACROILIITIS
     Route: 058
     Dates: start: 20210520, end: 20210624
  5. SAXENDA [Concomitant]
     Active Substance: LIRAGLUTIDE
     Indication: WEIGHT DECREASED

REACTIONS (19)
  - Injection site haematoma [Not Recovered/Not Resolved]
  - Injection site swelling [Not Recovered/Not Resolved]
  - Off label use [Unknown]
  - Dyspnoea [Recovered/Resolved]
  - Injection site erythema [Unknown]
  - Frustration tolerance decreased [Unknown]
  - Injection site erythema [Not Recovered/Not Resolved]
  - Sacroiliitis [Unknown]
  - Injection site vesicles [Not Recovered/Not Resolved]
  - Muscle spasms [Not Recovered/Not Resolved]
  - Injection site discolouration [Not Recovered/Not Resolved]
  - Fatigue [Unknown]
  - Depression [Unknown]
  - Skin induration [Not Recovered/Not Resolved]
  - Injection site pruritus [Not Recovered/Not Resolved]
  - Injection site pain [Not Recovered/Not Resolved]
  - Weight decreased [Unknown]
  - Depressed mood [Unknown]
  - Drug ineffective [Not Recovered/Not Resolved]

NARRATIVE: CASE EVENT DATE: 202102
